FAERS Safety Report 21449424 (Version 6)
Quarter: 2023Q1

REPORT INFORMATION
  Report Type: Report from Study
  Country: JP (occurrence: JP)
  Receive Date: 20221013
  Receipt Date: 20230203
  Transmission Date: 20230417
  Serious: Yes (Hospitalization)
  Sender: FDA-Public Use
  Company Number: JP-JNJFOC-20220949138

PATIENT
  Age: 50 Year
  Sex: Male
  Weight: 81.2 kg

DRUGS (28)
  1. USTEKINUMAB [Suspect]
     Active Substance: USTEKINUMAB
     Indication: Arthritis
     Route: 040
     Dates: start: 20220711
  2. USTEKINUMAB [Suspect]
     Active Substance: USTEKINUMAB
     Dosage: 250 ML
     Route: 040
     Dates: start: 20220912
  3. PREDONINE [Concomitant]
     Active Substance: PREDNISOLONE
     Indication: Takayasu^s arteritis
     Route: 048
     Dates: start: 20220823
  4. PREDONINE [Concomitant]
     Active Substance: PREDNISOLONE
     Route: 065
  5. PREDONINE [Concomitant]
     Active Substance: PREDNISOLONE
     Route: 065
  6. PREDONINE [Concomitant]
     Active Substance: PREDNISOLONE
     Route: 065
     Dates: start: 20221001
  7. PREDONINE [Concomitant]
     Active Substance: PREDNISOLONE
     Route: 065
     Dates: start: 20221129
  8. PREDONINE [Concomitant]
     Active Substance: PREDNISOLONE
     Route: 065
     Dates: start: 20221204
  9. PREDONINE [Concomitant]
     Active Substance: PREDNISOLONE
     Route: 065
     Dates: start: 20230107
  10. ELDECALCITOL [Concomitant]
     Active Substance: ELDECALCITOL
     Indication: Osteoporosis prophylaxis
     Dosage: 0.75 MCG/DAY
     Route: 048
     Dates: start: 20211123
  11. RABEPRAZOLE SODIUM [Concomitant]
     Active Substance: RABEPRAZOLE SODIUM
     Indication: Prophylaxis against gastrointestinal ulcer
     Route: 048
     Dates: start: 20210927
  12. ATOVAQUONE [Concomitant]
     Active Substance: ATOVAQUONE
     Indication: Antifungal prophylaxis
     Route: 048
     Dates: start: 20210302
  13. ITRACONAZOLE [Concomitant]
     Active Substance: ITRACONAZOLE
     Indication: Antifungal prophylaxis
     Route: 048
     Dates: start: 20210627
  14. REBAMIPIDE [Concomitant]
     Active Substance: REBAMIPIDE
     Indication: Small intestine ulcer
     Route: 048
     Dates: start: 20211124, end: 20220919
  15. AZULENE [Concomitant]
     Active Substance: AZULENE
     Indication: Pharyngitis
     Dosage: 3 PACKS/ DAY
     Route: 048
     Dates: start: 20220530, end: 20220919
  16. LOXOPROFEN SODIUM DIHYDRATE [Concomitant]
     Active Substance: LOXOPROFEN SODIUM DIHYDRATE
     Indication: Back pain
     Dosage: 1 TABLET, AS NEEDED
     Route: 048
     Dates: start: 2021
  17. LOXOPROFEN SODIUM [Concomitant]
     Active Substance: LOXOPROFEN SODIUM
     Indication: Back pain
     Route: 061
     Dates: start: 2021
  18. UNIACE [Concomitant]
     Indication: Asthenopia
     Dosage: 2 DROPS, AS NEEDED
     Route: 047
     Dates: start: 2022
  19. DEXTROMETHORPHAN HYDROBROMIDE [Concomitant]
     Active Substance: DEXTROMETHORPHAN HYDROBROMIDE
     Indication: Bronchitis
     Route: 048
     Dates: start: 20220912, end: 20220917
  20. DEXTROMETHORPHAN HYDROBROMIDE [Concomitant]
     Active Substance: DEXTROMETHORPHAN HYDROBROMIDE
     Indication: Paralysis recurrent laryngeal nerve
     Route: 048
     Dates: start: 20220918
  21. FERRIC SODIUM CITRATE [Concomitant]
     Active Substance: FERRIC SODIUM CITRATE
     Indication: Iron deficiency anaemia
     Route: 048
     Dates: start: 20220614
  22. IOMERON [Concomitant]
     Active Substance: IOMEPROL
     Indication: X-ray with contrast
     Route: 042
     Dates: start: 20220613
  23. IOMERON [Concomitant]
     Active Substance: IOMEPROL
     Route: 042
     Dates: start: 20220919
  24. XYLOCAINE [Concomitant]
     Active Substance: LIDOCAINE HYDROCHLORIDE
     Indication: Bronchoscopy
     Route: 061
     Dates: start: 20220919
  25. XYLOCAINE [Concomitant]
     Active Substance: LIDOCAINE HYDROCHLORIDE
     Indication: Endoscopy upper gastrointestinal tract
     Route: 061
     Dates: start: 20220930
  26. PRIVINA [NAPHAZOLINE] [Concomitant]
     Indication: Bronchoscopy
     Route: 045
  27. IOPAMIDOL [Concomitant]
     Active Substance: IOPAMIDOL
     Indication: X-ray with contrast
     Route: 042
     Dates: start: 20220928, end: 20220928
  28. DIMETHICONE [Concomitant]
     Active Substance: DIMETHICONE
     Indication: Endoscopy upper gastrointestinal tract
     Route: 065
     Dates: start: 20220930, end: 20220930

REACTIONS (1)
  - Vascular graft infection [Recovering/Resolving]

NARRATIVE: CASE EVENT DATE: 20220918
